FAERS Safety Report 8319078-8 (Version None)
Quarter: 2012Q2

REPORT INFORMATION
  Report Type: 
  Country: None (occurrence: None)
  Receive Date: 20120427
  Receipt Date: 20120418
  Transmission Date: 20120825
  Serious: Yes (Hospitalization, Other)
  Sender: FDA-Public Use
  Company Number: DE-JNJFOC-20120412268

PATIENT
  Age: 75 Year
  Sex: Female

DRUGS (2)
  1. FENTANYL [Concomitant]
     Indication: PRODUCT USED FOR UNKNOWN INDICATION
     Route: 062
     Dates: end: 20120301
  2. PALEXIA RETARD [Suspect]
     Indication: PRODUCT USED FOR UNKNOWN INDICATION
     Route: 048
     Dates: start: 20120329

REACTIONS (4)
  - MUSCLE SPASMS [None]
  - BACK PAIN [None]
  - HALLUCINATION [None]
  - INTESTINAL HAEMORRHAGE [None]
